FAERS Safety Report 12265861 (Version 4)
Quarter: 2016Q3

REPORT INFORMATION
  Report Type: Spontaneous
  Country: IT (occurrence: IT)
  Receive Date: 20160413
  Receipt Date: 20160824
  Transmission Date: 20161109
  Serious: Yes (Hospitalization)
  Sender: FDA-Public Use
  Company Number: IT-TAKEDA-2016MPI002386

PATIENT
  Age: 67 Year
  Sex: Female
  Weight: 62 kg

DRUGS (33)
  1. PREDNISONE. [Suspect]
     Active Substance: PREDNISONE
     Indication: PLASMA CELL MYELOMA
     Dosage: 100 MG, QD
     Route: 048
     Dates: start: 20160109, end: 20160221
  2. DARATUMUMAB [Suspect]
     Active Substance: DARATUMUMAB
     Indication: PLASMA CELL MYELOMA
     Dosage: 992 MG, QD
     Route: 042
     Dates: start: 20160108, end: 20160310
  3. DUROGESIC [Concomitant]
     Active Substance: FENTANYL
     Indication: NEURALGIA
     Dosage: 25 ?G, QOD
     Route: 065
     Dates: start: 20151221, end: 20160108
  4. TACHIPIRINA [Concomitant]
     Active Substance: ACETAMINOPHEN
     Indication: BACK PAIN
     Dosage: 1000 MG, UNK
     Route: 048
     Dates: start: 20151221, end: 20160108
  5. FLURAZEPAM [Concomitant]
     Active Substance: FLURAZEPAM\FLURAZEPAM HYDROCHLORIDE
     Indication: SLEEP DISORDER THERAPY
     Dosage: 15 MG, QD
     Route: 048
  6. MOVICOL [Concomitant]
     Active Substance: POLYETHYLENE GLYCOL 3350\POTASSIUM CHLORIDE\SODIUM BICARBONATE\SODIUM CHLORIDE
     Indication: CONSTIPATION
     Dosage: UNK, BID
     Route: 048
     Dates: start: 20160108, end: 20160115
  7. TAMIFLU [Concomitant]
     Active Substance: OSELTAMIVIR PHOSPHATE
     Indication: PYREXIA
     Dosage: 75 MG, BID
     Route: 048
     Dates: start: 20160201, end: 20160205
  8. BACTRIM [Concomitant]
     Active Substance: SULFAMETHOXAZOLE\TRIMETHOPRIM
     Indication: INFECTION PROPHYLAXIS
     Dosage: UNK
     Route: 048
     Dates: start: 20160108
  9. MOVICOL [Concomitant]
     Active Substance: POLYETHYLENE GLYCOL 3350\POTASSIUM CHLORIDE\SODIUM BICARBONATE\SODIUM CHLORIDE
     Indication: PROPHYLAXIS
     Dosage: UNK
     Route: 048
     Dates: start: 20160116
  10. MODURETIC 5-50 [Concomitant]
     Active Substance: AMILORIDE HYDROCHLORIDE\HYDROCHLOROTHIAZIDE
     Indication: OEDEMA PERIPHERAL
     Dosage: 55 MG, QD
     Route: 048
     Dates: start: 20160126, end: 20160208
  11. DELTACORTENE [Concomitant]
     Active Substance: PREDNISONE
     Indication: DERMO-HYPODERMITIS
     Dosage: 25 MG, QD
     Route: 048
     Dates: start: 20160208, end: 20160210
  12. MELPHALAN [Suspect]
     Active Substance: MELPHALAN
     Indication: PLASMA CELL MYELOMA
     Dosage: 15 MG, QD
     Route: 048
     Dates: start: 20160108, end: 20160221
  13. ABSTRAL [Concomitant]
     Active Substance: FENTANYL CITRATE
     Indication: BACK PAIN
     Dosage: 100 ?G, UNK
     Route: 048
     Dates: start: 20160111
  14. DUROGESIC [Concomitant]
     Active Substance: FENTANYL
     Dosage: 75 ?G, QOD
     Route: 065
     Dates: start: 20160122
  15. ZOVIRAX [Concomitant]
     Active Substance: ACYCLOVIR
     Indication: ANTIVIRAL PROPHYLAXIS
     Dosage: 400 MG, BID
     Route: 048
     Dates: start: 20160108
  16. TAVANIC [Concomitant]
     Active Substance: LEVOFLOXACIN
     Indication: PYREXIA
     Dosage: 500 MG, QD
     Route: 048
     Dates: start: 20160201, end: 20160205
  17. DELTACORTENE [Concomitant]
     Active Substance: PREDNISONE
     Dosage: 12.5 MG, QD
     Route: 048
     Dates: start: 20160211, end: 20160213
  18. VELCADE [Suspect]
     Active Substance: BORTEZOMIB
     Indication: PLASMA CELL MYELOMA
     Dosage: 1.67 MG, QD
     Route: 058
     Dates: start: 20160108
  19. PREDNISONE. [Suspect]
     Active Substance: PREDNISONE
     Dosage: 100 MG, UNK
     Route: 048
     Dates: start: 20150407, end: 20160409
  20. MELPHALAN [Suspect]
     Active Substance: MELPHALAN
     Dosage: 15 MG, UNK
     Route: 048
     Dates: start: 20160406, end: 20160409
  21. MODURETIC 5-50 [Concomitant]
     Active Substance: AMILORIDE HYDROCHLORIDE\HYDROCHLOROTHIAZIDE
     Dosage: 55 MG, QD
     Route: 048
     Dates: start: 20160211
  22. LEVOXACIN [Concomitant]
     Active Substance: LEVOFLOXACIN
     Indication: PYREXIA
     Dosage: 500 MG, QD
     Route: 048
     Dates: start: 20160321, end: 20160322
  23. DUROGESIC [Concomitant]
     Active Substance: FENTANYL
     Indication: BACK PAIN
     Dosage: 50 ?G, QOD
     Route: 065
     Dates: start: 20160108, end: 20160122
  24. ESOMEPRAZOLE [Concomitant]
     Active Substance: ESOMEPRAZOLE
     Indication: GASTROINTESTINAL DISORDER THERAPY
     Dosage: 20 MG, QD
     Route: 048
     Dates: start: 20151221
  25. GABAPENTIN. [Concomitant]
     Active Substance: GABAPENTIN
     Indication: NEURALGIA
     Dosage: 300 MG, QD
     Route: 048
     Dates: start: 20160122, end: 20160124
  26. VELCADE [Suspect]
     Active Substance: BORTEZOMIB
     Dosage: 1.67 MG, UNK
     Route: 058
     Dates: start: 20160129
  27. ORAMORPH [Concomitant]
     Active Substance: MORPHINE SULFATE
     Indication: BACK PAIN
     Dosage: 10 MG, QID
     Route: 060
     Dates: start: 20160108
  28. GABAPENTIN. [Concomitant]
     Active Substance: GABAPENTIN
     Dosage: 300 MG, BID
     Route: 048
     Dates: start: 20160125
  29. AUGMENTIN [Concomitant]
     Active Substance: AMOXICILLIN\CLAVULANATE POTASSIUM
     Indication: DERMO-HYPODERMITIS
     Dosage: 1 G, BID
     Route: 048
     Dates: start: 20160208, end: 20160213
  30. VELCADE [Suspect]
     Active Substance: BORTEZOMIB
     Dosage: 2.17 MG, UNK
     Route: 058
     Dates: start: 20160111
  31. MODURETIC 5-50 [Concomitant]
     Active Substance: AMILORIDE HYDROCHLORIDE\HYDROCHLOROTHIAZIDE
     Dosage: 82.5 MG, QD
     Route: 048
     Dates: start: 20160208, end: 20160210
  32. CO-EFFERALGAN [Concomitant]
     Active Substance: ACETAMINOPHEN\CODEINE PHOSPHATE
     Indication: NEURALGIA
     Dosage: UNK
     Route: 048
     Dates: start: 20160120
  33. CLEXANE [Concomitant]
     Active Substance: ENOXAPARIN SODIUM
     Indication: THROMBOSIS PROPHYLAXIS
     Dosage: UNK, QD
     Route: 058
     Dates: start: 20160329, end: 20160331

REACTIONS (6)
  - Oedema peripheral [Unknown]
  - Dermo-hypodermitis [Unknown]
  - Neuralgia [Unknown]
  - Constipation [Unknown]
  - Diarrhoea [Recovered/Resolved]
  - H1N1 influenza [Recovered/Resolved]

NARRATIVE: CASE EVENT DATE: 20160118
